FAERS Safety Report 15934812 (Version 1)
Quarter: 2019Q1

REPORT INFORMATION
  Report Type: Spontaneous
  Country: US (occurrence: US)
  Receive Date: 20190207
  Receipt Date: 20190207
  Transmission Date: 20190417
  Serious: No
  Sender: FDA-Public Use
  Company Number: US-BAUSCH-BL-2018-005619

PATIENT
  Age: 55 Year
  Sex: Male

DRUGS (2)
  1. CUPRIMINE [Suspect]
     Active Substance: PENICILLAMINE
     Indication: PRODUCT USED FOR UNKNOWN INDICATION
     Route: 048
     Dates: end: 20180226
  2. CUPRIMINE [Suspect]
     Active Substance: PENICILLAMINE
     Dosage: RE-STARTED AFTER GETTING OUT OF MEDICATION
     Route: 048
     Dates: end: 20190126

REACTIONS (2)
  - Therapy cessation [Not Recovered/Not Resolved]
  - Product availability issue [Not Recovered/Not Resolved]

NARRATIVE: CASE EVENT DATE: 20180227
